FAERS Safety Report 11218046 (Version 1)
Quarter: 2015Q2

REPORT INFORMATION
  Report Type: Spontaneous
  Country: US (occurrence: None)
  Receive Date: 20150624
  Receipt Date: 20150624
  Transmission Date: 20150821
  Serious: Yes (Life-Threatening, Hospitalization)
  Sender: FDA-Public Use
  Company Number: None

PATIENT
  Age: 56 Year
  Sex: Female
  Weight: 70 kg

DRUGS (1)
  1. COSYNTROPIN. [Suspect]
     Active Substance: COSYNTROPIN
     Indication: ADRENAL INSUFFICIENCY
     Route: 042
     Dates: start: 20150607, end: 20150607

REACTIONS (2)
  - Bradycardia [None]
  - Dizziness [None]

NARRATIVE: CASE EVENT DATE: 20150607
